FAERS Safety Report 24314382 (Version 1)
Quarter: 2024Q3

REPORT INFORMATION
  Report Type: Spontaneous
  Country: JP (occurrence: JP)
  Receive Date: 20240913
  Receipt Date: 20240913
  Transmission Date: 20241016
  Serious: Yes (Hospitalization, Other)
  Sender: BOEHRINGER INGELHEIM
  Company Number: JP-NBI-2024-BI-049663

PATIENT

DRUGS (2)
  1. DABIGATRAN ETEXILATE MESYLATE [Suspect]
     Active Substance: DABIGATRAN ETEXILATE MESYLATE
     Indication: Cerebral infarction
     Route: 048
  2. VIVIANT [Suspect]
     Active Substance: BAZEDOXIFENE
     Indication: Product used for unknown indication
     Route: 048

REACTIONS (4)
  - Intervertebral disc space narrowing [Unknown]
  - Spinal stenosis [Unknown]
  - Fracture [Unknown]
  - Fractured sacrum [Unknown]
